FAERS Safety Report 9555306 (Version 3)
Quarter: 2013Q4

REPORT INFORMATION
  Report Type: Spontaneous
  Country: US (occurrence: US)
  Receive Date: 20130926
  Receipt Date: 20131007
  Transmission Date: 20140711
  Serious: Yes (Hospitalization, Other)
  Sender: FDA-Public Use
  Company Number: US-JNJFOC-20130710983

PATIENT
  Age: 58 Year
  Sex: Male
  Weight: 88 kg

DRUGS (5)
  1. ZYTIGA [Suspect]
     Indication: PROSTATE CANCER METASTATIC
     Dosage: 4 TABLETS OF 250 MG AT ONCE.
     Route: 048
     Dates: start: 20130701, end: 20130716
  2. LUPRON [Concomitant]
     Route: 065
  3. PREDNISONE [Concomitant]
     Indication: PROSTATE CANCER
     Route: 048
     Dates: start: 20130701
  4. PREDNISONE [Concomitant]
     Indication: PROSTATE CANCER
     Route: 048
     Dates: start: 20130601, end: 201307
  5. NORCO [Concomitant]
     Route: 048

REACTIONS (11)
  - Pancreatic mass [Unknown]
  - Blood alkaline phosphatase increased [Not Recovered/Not Resolved]
  - Alanine aminotransferase increased [Not Recovered/Not Resolved]
  - Prostatic specific antigen increased [Not Recovered/Not Resolved]
  - Aspartate aminotransferase increased [Not Recovered/Not Resolved]
  - Sepsis [Unknown]
  - Peritonitis [Unknown]
  - Biliary drainage [Unknown]
  - Bile duct obstruction [Unknown]
  - Coagulopathy [Unknown]
  - Dehydration [Unknown]
